FAERS Safety Report 20539649 (Version 1)
Quarter: 2022Q1

REPORT INFORMATION
  Report Type: Spontaneous
  Country: PH (occurrence: PH)
  Receive Date: 20220302
  Receipt Date: 20220302
  Transmission Date: 20220424
  Serious: Yes (Other)
  Sender: FDA-Public Use
  Company Number: PH-BAYER-2021A234607

PATIENT
  Age: 60 Year
  Sex: Male

DRUGS (3)
  1. RIVAROXABAN [Suspect]
     Active Substance: RIVAROXABAN
     Indication: Embolism venous
     Dosage: 15 MG, BID
     Route: 048
     Dates: start: 202110
  2. RIVAROXABAN [Suspect]
     Active Substance: RIVAROXABAN
     Dosage: 15 MG, BID
     Route: 048
     Dates: start: 202110
  3. RIVAROXABAN [Suspect]
     Active Substance: RIVAROXABAN
     Dosage: 20 MG, QD
     Route: 048
     Dates: start: 202110, end: 202110

REACTIONS (2)
  - Thrombosis [Unknown]
  - Product prescribing issue [Unknown]

NARRATIVE: CASE EVENT DATE: 20211001
